FAERS Safety Report 4954495-5 (Version None)
Quarter: 2006Q1

REPORT INFORMATION
  Report Type: 
  Country: None (occurrence: None)
  Receive Date: 20060321
  Receipt Date: 20060309
  Transmission Date: 20060701
  Serious: Yes (Other)
  Sender: FDA-Public Use
  Company Number: US017045

PATIENT
  Age: 50 Year
  Sex: Male

DRUGS (3)
  1. TRISENOX [Suspect]
  2. IDARUBICIN HCL [Concomitant]
  3. DEXAMETHASONE TAB [Concomitant]

REACTIONS (1)
  - SUBARACHNOID HAEMORRHAGE [None]
